FAERS Safety Report 17202510 (Version 1)
Quarter: 2019Q4

REPORT INFORMATION
  Report Type: Report from Study
  Country: HU (occurrence: HU)
  Receive Date: 20191226
  Receipt Date: 20191226
  Transmission Date: 20200122
  Serious: Yes (Death, Hospitalization, Other)
  Sender: FDA-Public Use
  Company Number: HU-INCYTE CORPORATION-2019IN012701

PATIENT

DRUGS (3)
  1. JAKAVI [Suspect]
     Active Substance: RUXOLITINIB
     Indication: MYELOFIBROSIS
     Dosage: 20 MG, BID
     Route: 048
     Dates: start: 20170209, end: 201908
  2. JAKAVI [Suspect]
     Active Substance: RUXOLITINIB
     Indication: POLYCYTHAEMIA VERA
     Dosage: UNK
     Route: 048
     Dates: start: 20170203
  3. JAKAVI [Suspect]
     Active Substance: RUXOLITINIB
     Indication: SPLENOMEGALY
     Dosage: UNK
     Route: 065
     Dates: start: 201909

REACTIONS (13)
  - Abdominal pain [Unknown]
  - Anaemia [Recovering/Resolving]
  - General physical health deterioration [Unknown]
  - Skin cancer metastatic [Unknown]
  - Splenomegaly [Recovering/Resolving]
  - Hydrothorax [Unknown]
  - Death [Fatal]
  - Respiratory failure [Unknown]
  - Leukocytosis [Unknown]
  - Metastases to pleura [Recovering/Resolving]
  - Sarcomatoid carcinoma [Recovering/Resolving]
  - Dyspnoea [Unknown]
  - Muscle fibrosis [Not Recovered/Not Resolved]

NARRATIVE: CASE EVENT DATE: 2019
